FAERS Safety Report 6395739-5 (Version None)
Quarter: 2009Q4

REPORT INFORMATION
  Report Type: 
  Country: None (occurrence: None)
  Receive Date: 20091009
  Receipt Date: 20091001
  Transmission Date: 20100525
  Serious: Yes (Death, Life-Threatening, Hospitalization, Other)
  Sender: FDA-Public Use
  Company Number: US-TYCO HEALTHCARE/MALLINCKRODT-T200800680

PATIENT

DRUGS (24)
  1. OPTIMARK [Suspect]
     Indication: NUCLEAR MAGNETIC RESONANCE IMAGING BRAIN
     Dosage: UNK, SINGLE
     Dates: start: 20051123, end: 20051123
  2. OPTIMARK [Suspect]
     Dosage: UNK, SINGLE
     Dates: start: 20051129, end: 20051129
  3. OPTIMARK [Suspect]
     Dosage: UNK, SINGLE
     Dates: start: 20051214, end: 20051214
  4. OPTIMARK [Suspect]
     Dosage: UNK, SINGLE
     Dates: start: 20060303, end: 20060303
  5. OPTIMARK [Suspect]
     Dosage: UNK, SINGLE
     Dates: start: 20060407, end: 20060407
  6. LIPITOR [Concomitant]
     Indication: BLOOD CHOLESTEROL INCREASED
     Dates: start: 20050101, end: 20060101
  7. VYTORIN [Concomitant]
     Indication: BLOOD CHOLESTEROL INCREASED
     Dates: start: 20050101, end: 20060101
  8. HECTOROL [Concomitant]
     Indication: HYPERTHYROIDISM
     Dates: start: 20050101, end: 20060101
  9. SENSIPAR [Concomitant]
     Indication: HYPERTHYROIDISM
     Dates: start: 20050101, end: 20060101
  10. NORVASC [Concomitant]
     Indication: HYPERTENSION
     Dates: start: 20050101, end: 20060101
  11. TOPROL-XL [Concomitant]
     Indication: HYPERTENSION
     Dates: start: 20050101, end: 20060101
  12. NADOLOL [Concomitant]
     Indication: HYPERTENSION
     Dates: start: 20050101, end: 20060101
  13. CLONIDINE [Concomitant]
     Indication: HYPERTENSION
     Dates: start: 20050101, end: 20060101
  14. VERAPAMIL [Concomitant]
     Indication: HYPERTENSION
     Dates: start: 20050101, end: 20060101
  15. AMIODARONE [Concomitant]
     Indication: TACHYCARDIA
     Dates: start: 20050101, end: 20060101
  16. CARDIZEM [Concomitant]
     Indication: TACHYCARDIA
     Dates: start: 20050101, end: 20060101
  17. WARFARIN SODIUM [Concomitant]
     Indication: ANTICOAGULANT THERAPY
     Dates: start: 20050101, end: 20060101
  18. OXYCODONE [Concomitant]
     Indication: ANALGESIC THERAPY
     Dates: start: 20050101, end: 20060101
  19. PROPOXYPHENE HCL CAP [Concomitant]
     Indication: ANALGESIC THERAPY
     Dates: start: 20050101, end: 20060101
  20. DARVOCET-N 100 [Concomitant]
     Dosage: EVERY 6 HOURS PRN
  21. EPOGEN [Concomitant]
     Dosage: UNK, PRN
  22. FERRLECIT                          /00345601/ [Concomitant]
     Dosage: UNK, PRN
     Route: 042
  23. AMBIEN [Concomitant]
     Dosage: 5 MG 1/2 TABLET AT NIGHT PRN
  24. NEPHRO-VITE                        /02375601/ [Concomitant]
     Dosage: UNK, DAILY

REACTIONS (33)
  - ANXIETY [None]
  - ARTHRALGIA [None]
  - ASCITES [None]
  - ATELECTASIS [None]
  - ATRIOVENTRICULAR BLOCK FIRST DEGREE [None]
  - AZOTAEMIA [None]
  - BACK PAIN [None]
  - BREAST ENLARGEMENT [None]
  - CARDIAC FAILURE CONGESTIVE [None]
  - CARDIO-RESPIRATORY ARREST [None]
  - CARDIOMEGALY [None]
  - CEREBRAL ATROPHY [None]
  - DIARRHOEA [None]
  - DYSPNOEA [None]
  - FLUID OVERLOAD [None]
  - FUNGAEMIA [None]
  - HYPERGLYCAEMIA [None]
  - HYPOTENSION [None]
  - HYPOXIA [None]
  - INCONTINENCE [None]
  - LEFT ATRIAL DILATATION [None]
  - METABOLIC ENCEPHALOPATHY [None]
  - NAUSEA [None]
  - NEPHROGENIC SYSTEMIC FIBROSIS [None]
  - OFF LABEL USE [None]
  - PLEURAL EFFUSION [None]
  - PNEUMONIA STAPHYLOCOCCAL [None]
  - PRODUCTIVE COUGH [None]
  - PULMONARY OEDEMA [None]
  - PYREXIA [None]
  - UNRESPONSIVE TO STIMULI [None]
  - VERTIGO [None]
  - VOMITING [None]
